FAERS Safety Report 10188439 (Version 1)
Quarter: 2014Q2

REPORT INFORMATION
  Report Type: Spontaneous
  Country: RO (occurrence: None)
  Receive Date: 20140521
  Receipt Date: 20140521
  Transmission Date: 20141212
  Serious: Yes (Other)
  Sender: FDA-Public Use
  Company Number: None

PATIENT
  Age: 26 Year
  Sex: Female
  Weight: 85 kg

DRUGS (1)
  1. DEPAKINE CHRONO [Suspect]
     Indication: LOWER LIMB FRACTURE
     Dosage: 3/DAY
     Route: 048
     Dates: start: 20110928, end: 20140507

REACTIONS (1)
  - Dysgeusia [None]
